FAERS Safety Report 9203132 (Version 1)
Quarter: 2013Q1

REPORT INFORMATION
  Report Type: Spontaneous
  Country: US (occurrence: None)
  Receive Date: 20120709
  Receipt Date: 20120709
  Transmission Date: 20140127
  Serious: Yes (Hospitalization, Other)
  Sender: FDA-Public Use
  Company Number: PHEH2011US01340

PATIENT
  Age: 82 Year
  Sex: Male
  Weight: 87 kg

DRUGS (3)
  1. GLEEVEC (IMATINIB) [Suspect]
     Indication: CHRONIC MYELOID LEUKAEMIA
     Route: 048
     Dates: start: 201010, end: 201012
  2. PREDNISONE (PREDNISONE) [Concomitant]
  3. AMLODIPINE (AMLODIPINE) [Concomitant]

REACTIONS (6)
  - Pleural effusion [None]
  - Nausea [None]
  - Oedema peripheral [None]
  - Vomiting [None]
  - Abdominal distension [None]
  - Periorbital oedema [None]
